FAERS Safety Report 23736534 (Version 1)
Quarter: 2024Q2

REPORT INFORMATION
  Report Type: Spontaneous
  Country: FR (occurrence: None)
  Receive Date: 20240412
  Receipt Date: 20240412
  Transmission Date: 20240716
  Serious: Yes (Death)
  Sender: FDA-Public Use
  Company Number: 2024A084918

PATIENT
  Age: 85 Year
  Sex: Female

DRUGS (15)
  1. TICAGRELOR [Suspect]
     Active Substance: TICAGRELOR
     Indication: Ischaemic heart disease prophylaxis
     Dosage: 180.0MG ONCE/SINGLE ADMINISTRATION
     Route: 048
     Dates: start: 20240319, end: 20240319
  2. XARELTO [Suspect]
     Active Substance: RIVAROXABAN
     Indication: Cerebrovascular accident prophylaxis
     Route: 048
     Dates: end: 20240319
  3. ASPIRIN DL-LYSINE [Suspect]
     Active Substance: ASPIRIN DL-LYSINE
     Indication: Ischaemic heart disease prophylaxis
     Dosage: 250.0MG ONCE/SINGLE ADMINISTRATION
     Route: 048
     Dates: start: 20240319, end: 20240319
  4. HEPARIN [Suspect]
     Active Substance: HEPARIN SODIUM
     Indication: Ischaemic heart disease prophylaxis
     Dosage: 3000.0IU ONCE/SINGLE ADMINISTRATION
     Route: 040
     Dates: start: 20240319, end: 20240319
  5. METFORMIN HYDROCHLORIDE [Concomitant]
     Active Substance: METFORMIN HYDROCHLORIDE
  6. HYDROCHLOROTHIAZIDE\IRBESARTAN [Concomitant]
     Active Substance: HYDROCHLOROTHIAZIDE\IRBESARTAN
  7. LERCANIDIPINE [Concomitant]
     Active Substance: LERCANIDIPINE
  8. INIPOMP [Concomitant]
     Active Substance: PANTOPRAZOLE SODIUM
  9. EZETIMIBE\SIMVASTATIN [Concomitant]
     Active Substance: EZETIMIBE\SIMVASTATIN
  10. LATANOPROST [Concomitant]
     Active Substance: LATANOPROST
  11. HEXAQUINE [Concomitant]
     Active Substance: NIAOULI OIL\QUININE BENZOATE\THIAMINE HYDROCHLORIDE
  12. OXAZEPAM [Concomitant]
     Active Substance: OXAZEPAM
  13. GLICLAZIDE [Concomitant]
     Active Substance: GLICLAZIDE
  14. BISOPROLOL FUMARATE [Concomitant]
     Active Substance: BISOPROLOL FUMARATE
  15. DOLIPRANE [Concomitant]
     Active Substance: ACETAMINOPHEN

REACTIONS (1)
  - Cerebral haematoma [Fatal]

NARRATIVE: CASE EVENT DATE: 20240319
